FAERS Safety Report 6129248-5 (Version None)
Quarter: 2009Q1

REPORT INFORMATION
  Report Type: 
  Country: None (occurrence: None)
  Receive Date: 20090324
  Receipt Date: 20090312
  Transmission Date: 20090719
  Serious: Yes (Other)
  Sender: FDA-Public Use
  Company Number: US-ROCHE-617273

PATIENT
  Sex: Female
  Weight: 52.2 kg

DRUGS (3)
  1. CAPECITABINE [Suspect]
     Indication: BREAST CANCER
     Route: 048
     Dates: start: 20090108
  2. PHENERGAN [Concomitant]
     Indication: NAUSEA
     Dosage: FREQUENCY: 4-6 HOURS
     Route: 048
  3. MS CONTIN [Concomitant]
     Indication: PAIN

REACTIONS (1)
  - DISEASE PROGRESSION [None]
